FAERS Safety Report 14674465 (Version 1)
Quarter: 2018Q1

REPORT INFORMATION
  Report Type: Spontaneous
  Country: CA (occurrence: CA)
  Receive Date: 20180323
  Receipt Date: 20180323
  Transmission Date: 20180509
  Serious: Yes (Other)
  Sender: FDA-Public Use
  Company Number: CA-BAYER-2018-051779

PATIENT
  Age: 35 Year
  Sex: Female
  Weight: 82 kg

DRUGS (1)
  1. MIRENA [Suspect]
     Active Substance: LEVONORGESTREL
     Indication: CONTRACEPTION
     Dosage: 20 MCG/24HR, CONT
     Route: 015

REACTIONS (13)
  - Arthralgia [Unknown]
  - Depression [Unknown]
  - Weight increased [Unknown]
  - Nervousness [Unknown]
  - Sleep disorder [Unknown]
  - Headache [Unknown]
  - Anxiety [Unknown]
  - Loss of libido [Unknown]
  - Myalgia [Unknown]
  - Gait disturbance [Unknown]
  - Fatigue [Unknown]
  - Hypertrichosis [Unknown]
  - Back pain [Unknown]
